FAERS Safety Report 5120055-9 (Version None)
Quarter: 2006Q3

REPORT INFORMATION
  Report Type: 
  Country: None (occurrence: None)
  Receive Date: 20060929
  Receipt Date: 20060915
  Transmission Date: 20061208
  Serious: Yes (Death, Life-Threatening, Hospitalization)
  Sender: FDA-Public Use
  Company Number: 2006-08-1123

PATIENT
  Age: 61 Year
  Sex: Male
  Weight: 48 kg

DRUGS (6)
  1. PEG-INTRON [Suspect]
     Indication: HEPATITIS C
     Dosage: 75 MCG; QW; SC
     Route: 058
     Dates: start: 20060721, end: 20060804
  2. REBETOL [Suspect]
     Indication: HEPATITIS C
     Dosage: 600 MG; QD; PO
     Route: 048
     Dates: start: 20060720, end: 20060809
  3. HUMACART R [Concomitant]
  4. HUMACART 3/7 [Concomitant]
  5. NEODOPASTON [Concomitant]
  6. SIFROL [Concomitant]

REACTIONS (7)
  - ACUTE MYOCARDIAL INFARCTION [None]
  - ARRHYTHMIA [None]
  - BACK PAIN [None]
  - CARDIAC DEATH [None]
  - CARDIO-RESPIRATORY ARREST [None]
  - PNEUMONIA [None]
  - RHABDOMYOLYSIS [None]
